FAERS Safety Report 5796947-4 (Version None)
Quarter: 2008Q2

REPORT INFORMATION
  Report Type: 
  Country: None (occurrence: None)
  Receive Date: 20080627
  Receipt Date: 20080527
  Transmission Date: 20081010
  Serious: Yes (Hospitalization)
  Sender: FDA-Public Use
  Company Number: GXKR2008IT05485

PATIENT
  Sex: Male

DRUGS (1)
  1. FLUTAMIDE [Suspect]

REACTIONS (5)
  - EYELID OEDEMA [None]
  - GYNAECOMASTIA [None]
  - LOCALISED OEDEMA [None]
  - PHOTOSENSITIVITY REACTION [None]
  - RASH [None]
